FAERS Safety Report 23117088 (Version 1)
Quarter: 2023Q4

REPORT INFORMATION
  Report Type: Spontaneous
  Country: US (occurrence: US)
  Receive Date: 20231027
  Receipt Date: 20231027
  Transmission Date: 20240110
  Serious: Yes (Other)
  Sender: FDA-Public Use
  Company Number: US-Stemline Therapeutics, Inc.-2023ST003962

PATIENT
  Age: 59 Year
  Sex: Female

DRUGS (1)
  1. ORSERDU [Suspect]
     Active Substance: ELACESTRANT
     Indication: Product used for unknown indication
     Dosage: 345 MG ONCE DAILY
     Route: 048
     Dates: start: 20230713

REACTIONS (11)
  - Bone cancer [Unknown]
  - Carbohydrate antigen 125 increased [Unknown]
  - Blood magnesium decreased [Unknown]
  - White blood cell count decreased [Unknown]
  - Haemoglobin decreased [Unknown]
  - Oedema peripheral [Unknown]
  - Pain [Unknown]
  - Therapeutic response unexpected [Unknown]
  - Arthropathy [Unknown]
  - Back pain [Unknown]
  - Fatigue [Unknown]
